FAERS Safety Report 20035449 (Version 1)
Quarter: 2021Q4

REPORT INFORMATION
  Report Type: Spontaneous
  Country: US (occurrence: US)
  Receive Date: 20211104
  Receipt Date: 20211104
  Transmission Date: 20220303
  Serious: Yes (Other)
  Sender: FDA-Public Use
  Company Number: US-NOVOPROD-793229

PATIENT
  Sex: Female

DRUGS (2)
  1. FIASP [Suspect]
     Active Substance: INSULIN ASPART
     Indication: Type 1 diabetes mellitus
     Dosage: UNK
     Route: 058
  2. FIASP [Suspect]
     Active Substance: INSULIN ASPART
     Dosage: DOSE 7 UNITS
     Route: 058

REACTIONS (6)
  - Blood glucose decreased [Unknown]
  - Hypoglycaemia [Unknown]
  - Blood glucose decreased [Unknown]
  - Blood glucose increased [Recovered/Resolved]
  - Blood glucose increased [Unknown]
  - Overdose [Recovered/Resolved]
